FAERS Safety Report 10417441 (Version 2)
Quarter: 2014Q3

REPORT INFORMATION
  Report Type: Spontaneous
  Country: FR (occurrence: FR)
  Receive Date: 20140829
  Receipt Date: 20140916
  Transmission Date: 20150326
  Serious: Yes (Hospitalization)
  Sender: FDA-Public Use
  Company Number: FR-ROCHE-1455293

PATIENT
  Age: 63 Year
  Sex: Female

DRUGS (8)
  1. EUPANTOL [Concomitant]
     Active Substance: PANTOPRAZOLE SODIUM
     Route: 048
  2. CORTANCYL [Concomitant]
     Active Substance: PREDNISONE
     Route: 048
  3. PARACETAMOL [Concomitant]
     Active Substance: ACETAMINOPHEN
     Route: 065
  4. TERCIAN [Concomitant]
     Active Substance: CYAMEMAZINE
     Route: 048
  5. URBANYL [Concomitant]
     Active Substance: CLOBAZAM
     Route: 048
  6. PRIMPERAN [Concomitant]
     Active Substance: METOCLOPRAMIDE HYDROCHLORIDE
     Route: 065
  7. ZELBORAF [Suspect]
     Active Substance: VEMURAFENIB
     Indication: MALIGNANT MELANOMA
     Route: 048
     Dates: start: 20140521
  8. DEROXAT [Concomitant]
     Active Substance: PAROXETINE HYDROCHLORIDE
     Route: 048

REACTIONS (4)
  - Erythema [Not Recovered/Not Resolved]
  - Renal failure acute [Not Recovered/Not Resolved]
  - Xerosis [Not Recovered/Not Resolved]
  - Renal tubular necrosis [Not Recovered/Not Resolved]

NARRATIVE: CASE EVENT DATE: 20140526
